FAERS Safety Report 15511894 (Version 1)
Quarter: 2018Q4

REPORT INFORMATION
  Report Type: Spontaneous
  Country: US (occurrence: US)
  Receive Date: 20181011
  Receipt Date: 20181011
  Transmission Date: 20190205
  Serious: Yes (Death, Hospitalization)
  Sender: FDA-Public Use
  Company Number: None

PATIENT
  Age: 13 Year
  Weight: 79.8 kg

DRUGS (6)
  1. CYTARABINE (63878) [Suspect]
     Active Substance: CYTARABINE
     Dates: end: 20180719
  2. ONCASPAR [Concomitant]
     Active Substance: PEGASPARGASE
  3. DAUNORUBICIN 90 MG [Concomitant]
     Active Substance: DAUNORUBICIN
     Dates: end: 20180725
  4. VINCRISTINESULFATE 4MG [Concomitant]
     Active Substance: VINCRISTINE SULFATE
  5. METHOTREXATE (METHOTREXATE SODIUM) [Concomitant]
     Active Substance: METHOTREXATE SODIUM
     Dates: end: 20180725
  6. PREDNISONE 1155MG [Concomitant]
     Active Substance: PREDNISONE
     Dates: end: 20180727

REACTIONS (21)
  - Tachycardia [None]
  - Pseudomonas infection [None]
  - Ileus [None]
  - Intestinal obstruction [None]
  - Posterior reversible encephalopathy syndrome [None]
  - Pancreatitis [None]
  - Hypotension [None]
  - Blast cell count increased [None]
  - Pneumonia [None]
  - Menorrhagia [None]
  - Pulmonary haemorrhage [None]
  - Sepsis [None]
  - Biopsy lung abnormal [None]
  - Neutropenia [None]
  - Gastritis [None]
  - Blood culture positive [None]
  - Hyperglycaemia [None]
  - Pneumopericardium [None]
  - Treatment failure [None]
  - Lower respiratory tract infection fungal [None]
  - Aspergillus infection [None]

NARRATIVE: CASE EVENT DATE: 20180914
